FAERS Safety Report 15723964 (Version 1)
Quarter: 2018Q4

REPORT INFORMATION
  Report Type: Report from Study
  Country: None (occurrence: US)
  Receive Date: 20181214
  Receipt Date: 20181214
  Transmission Date: 20190205
  Serious: Yes (Other)
  Sender: FDA-Public Use
  Company Number: US-ABBVIE-18S-163-2589152-00

PATIENT
  Age: 41 Year
  Sex: Male

DRUGS (1)
  1. GENGRAF [Suspect]
     Active Substance: CYCLOSPORINE
     Indication: PRODUCT USED FOR UNKNOWN INDICATION
     Route: 048

REACTIONS (9)
  - Erectile dysfunction [Unknown]
  - Weight increased [Unknown]
  - Headache [Unknown]
  - Gout [Unknown]
  - Depression [Unknown]
  - Obesity [Unknown]
  - Hypertension [Unknown]
  - Renal transplant [Unknown]
  - Hyperlipidaemia [Unknown]

NARRATIVE: CASE EVENT DATE: 20130930
